FAERS Safety Report 20856530 (Version 2)
Quarter: 2022Q2

REPORT INFORMATION
  Report Type: Spontaneous
  Country: US (occurrence: US)
  Receive Date: 20220520
  Receipt Date: 20220604
  Transmission Date: 20220721
  Serious: No
  Sender: FDA-Public Use
  Company Number: US-SA-SAC20220511001545

PATIENT
  Age: 56 Year
  Sex: Male

DRUGS (16)
  1. DUPIXENT [Suspect]
     Active Substance: DUPILUMAB
     Indication: Chronic rhinosinusitis with nasal polyps
     Dosage: 300 MG, QOW
     Route: 059
     Dates: start: 20220202
  2. BETHANECHOL CHLORIDE [Concomitant]
     Active Substance: BETHANECHOL CHLORIDE
     Indication: Gastrooesophageal reflux disease
     Dosage: 1 TAB 3 TICV1ES DAILY X 30
     Dates: start: 20190319
  3. CLOBETASOL [Concomitant]
     Active Substance: CLOBETASOL
     Dosage: UNK
  4. CYCLOBENZAPRINE [Concomitant]
     Active Substance: CYCLOBENZAPRINE
     Dosage: DISP. 15 NR
  5. DEXILANT [Concomitant]
     Active Substance: DEXLANSOPRAZOLE
     Dosage: DISP. 30 NR
  6. FLUTICASONE PROPIONATE [Concomitant]
     Active Substance: FLUTICASONE PROPIONATE
     Dosage: 50 RNCG/SOLATION SPRAY,SUSPENSION SPRAY 1 SPRAY INTO BOTH NOSTRILS, BID
     Dates: start: 20211124, end: 20220119
  7. FLUTICASONE PROPIONATE [Concomitant]
     Active Substance: FLUTICASONE PROPIONATE
     Dosage: 93MCG/ACTUATION AEROSOL BREATH ACTIVATED INHALE 1 SPRAY INTO BOTH NOSTRILS TWICE A DAY X 30DAYS,DISP
     Dates: start: 20211215
  8. KETOCONAZOLE [Concomitant]
     Active Substance: KETOCONAZOLE
     Dosage: DISP. 120 NR
  9. LEVOCETIRIZINE [Concomitant]
     Active Substance: LEVOCETIRIZINE
     Dosage: 1 TABLET AT BEDTIME X 30 DAYS, DISP. 30 RFL, QD
     Dates: start: 20220228
  10. LORAZEPAM [Concomitant]
     Active Substance: LORAZEPAM
     Dosage: TAKE 1TABLET BY MOUTH EVERDAY AT BEDTIME X30DAYS
     Dates: start: 20190327
  11. METFORMIN [Concomitant]
     Active Substance: METFORMIN HYDROCHLORIDE
     Dosage: DISP. 180 NR
  12. MONTELUKAST [Concomitant]
     Active Substance: MONTELUKAST SODIUM
     Dosage: TAKE 1 TABLET BY MOUTH AT BEDTIME, TAKE ONE TABLET AT BEDTIME DAILY X 90DAYS,DISP .90RFL
     Dates: start: 20220228
  13. RANITIDINE HYDROCHLORIDE [Concomitant]
     Active Substance: RANITIDINE HYDROCHLORIDE
     Dosage: TAKE 1 TABLET BY MOUTH NIGHTLY X30 DAYS
     Dates: start: 20180126
  14. SUCRALFATE [Concomitant]
     Active Substance: SUCRALFATE
     Dosage: DISP. 120 NR
  15. TADALAFIL [Concomitant]
     Active Substance: TADALAFIL
     Dosage: DISP. 30 NR
  16. TRIAMCINOLONE ACETONIDE [Concomitant]
     Active Substance: TRIAMCINOLONE ACETONIDE
     Dosage: DISP. 60NR

REACTIONS (2)
  - Arthralgia [Not Recovered/Not Resolved]
  - Incorrect route of product administration [Unknown]

NARRATIVE: CASE EVENT DATE: 20220301
